FAERS Safety Report 10190388 (Version 1)
Quarter: 2014Q2

REPORT INFORMATION
  Report Type: Spontaneous
  Country: FR (occurrence: FR)
  Receive Date: 20140522
  Receipt Date: 20140522
  Transmission Date: 20141212
  Serious: Yes (Hospitalization)
  Sender: FDA-Public Use
  Company Number: FR-ASTRAZENECA-2014SE33521

PATIENT
  Age: 28730 Day
  Sex: Male

DRUGS (10)
  1. CRESTOR [Suspect]
     Route: 048
     Dates: end: 20140214
  2. TAVANIC [Suspect]
     Indication: LIMB INJURY
     Route: 048
     Dates: start: 20140206, end: 20140214
  3. APROVEL [Suspect]
     Route: 048
     Dates: end: 20140214
  4. ONBREZ BREEZHALER [Concomitant]
     Route: 055
     Dates: end: 201402
  5. CARDENSIEL [Concomitant]
     Route: 048
  6. AMLODIPINE [Concomitant]
     Route: 048
  7. DISCOTRINE [Concomitant]
     Dosage: 15 MG/24 HOURS 1 DF EVERY DAY
     Route: 062
  8. FUROSEMIDE [Concomitant]
     Route: 048
     Dates: end: 20140214
  9. PRADAXA [Concomitant]
     Route: 048
     Dates: end: 20140214
  10. ALLOPURINOL [Concomitant]
     Route: 048

REACTIONS (2)
  - Renal failure acute [Recovered/Resolved]
  - Rhabdomyolysis [Recovered/Resolved]
